FAERS Safety Report 9056618 (Version 2)
Quarter: 2013Q1

REPORT INFORMATION
  Report Type: Spontaneous
  Country: US (occurrence: US)
  Receive Date: 20130204
  Receipt Date: 20130225
  Transmission Date: 20140127
  Serious: No
  Sender: FDA-Public Use
  Company Number: US-ALLERGAN-1301297US

PATIENT
  Age: 88 Year
  Sex: Female

DRUGS (7)
  1. LUMIGAN? 0.01% [Suspect]
     Indication: OPEN ANGLE GLAUCOMA
     Dosage: 1 GTT OU, QPM
     Route: 047
     Dates: start: 200205
  2. LUMIGAN? 0.01% [Suspect]
     Indication: INTRAOCULAR PRESSURE INCREASED
  3. BENICAR [Concomitant]
     Indication: HYPERTENSION
     Dosage: UNK
     Route: 048
  4. TERAZOSIN [Concomitant]
     Indication: HYPERTENSION
     Dosage: UNK
     Route: 048
  5. LEVOTHYROXINE [Concomitant]
     Indication: HYPOTHYROIDISM
     Dosage: UNK
     Route: 048
  6. GABAPENTIN [Concomitant]
     Indication: TRIGEMINAL NEURALGIA
     Dosage: UNK
     Route: 048
  7. HYDRALAZINE [Concomitant]
     Indication: PRODUCT USED FOR UNKNOWN INDICATION
     Dosage: UNK
     Route: 048

REACTIONS (7)
  - Precancerous skin lesion [Unknown]
  - Adverse event [Unknown]
  - Middle insomnia [Unknown]
  - Skin swelling [Unknown]
  - Instillation site pain [Unknown]
  - Hypertrichosis [Unknown]
  - Blepharal pigmentation [Unknown]
